FAERS Safety Report 4332126-5 (Version None)
Quarter: 2004Q2

REPORT INFORMATION
  Report Type: 
  Country: None (occurrence: None)
  Receive Date: 20040405
  Receipt Date: 20040217
  Transmission Date: 20050107
  Serious: Yes (Life-Threatening, Hospitalization)
  Sender: FDA-Public Use
  Company Number: PHHO2004JP02456

PATIENT
  Age: 60 Year
  Sex: Male
  Weight: 63 kg

DRUGS (4)
  1. FTY720 VS MYCOPHENOLATE MOFETIL [Suspect]
     Indication: RENAL TRANSPLANT
     Dosage: CODE NOT BROKEN
     Route: 048
     Dates: start: 20040120, end: 20040216
  2. NEORAL [Suspect]
     Indication: RENAL TRANSPLANT
     Dosage: 250 MG, BID
     Route: 048
     Dates: start: 20040120, end: 20040216
  3. PREDONINE [Concomitant]
     Indication: RENAL TRANSPLANT
     Dosage: 20 MG, BID
     Route: 048
     Dates: start: 20040121, end: 20040216
  4. PREDONINE [Concomitant]
     Dosage: NOT REPORTED
     Route: 048
     Dates: start: 20040220

REACTIONS (8)
  - CHEST PAIN [None]
  - DISEASE PROGRESSION [None]
  - DYSPNOEA [None]
  - GRAFT DYSFUNCTION [None]
  - HAEMODIALYSIS [None]
  - INTRA-AORTIC BALLOON PLACEMENT [None]
  - PULMONARY OEDEMA [None]
  - VENTRICULAR HYPOKINESIA [None]
